FAERS Safety Report 9523638 (Version 1)
Quarter: 2013Q3

REPORT INFORMATION
  Report Type: Spontaneous
  Country: FR (occurrence: FR)
  Receive Date: 20130913
  Receipt Date: 20130913
  Transmission Date: 20140515
  Serious: Yes (Hospitalization)
  Sender: FDA-Public Use
  Company Number: FR-BAYER-2013-107395

PATIENT
  Age: 82 Year
  Sex: Male

DRUGS (6)
  1. CIFLOX [Suspect]
     Dosage: 500 MG, UNK
     Route: 048
     Dates: start: 20130608, end: 20130609
  2. OFLOCET [Suspect]
     Dosage: 200 MG, BID
     Route: 048
     Dates: start: 20130605, end: 20130607
  3. BACTRIM [Suspect]
     Indication: PROSTATITIS
     Dosage: UNK
     Route: 048
     Dates: start: 20130609
  4. DAFALGAN [Concomitant]
     Dosage: 500 MG, UNK
     Route: 048
  5. STAGID [Concomitant]
     Dosage: 700 MG, UNK
  6. LEVOTHYROX [Concomitant]
     Dosage: 112.5 ?G, QD
     Route: 048

REACTIONS (6)
  - Oral mucosa erosion [Recovering/Resolving]
  - Enanthema [Recovering/Resolving]
  - Pyrexia [Recovered/Resolved]
  - Asthenia [Recovered/Resolved]
  - Decreased appetite [Recovered/Resolved]
  - Rash maculo-papular [Recovering/Resolving]
